FAERS Safety Report 10285599 (Version 3)
Quarter: 2014Q4

REPORT INFORMATION
  Report Type: Report from Study
  Country: US (occurrence: US)
  Receive Date: 20140709
  Receipt Date: 20141027
  Transmission Date: 20150528
  Serious: Yes (Hospitalization, Other)
  Sender: FDA-Public Use
  Company Number: US-BIOGENIDEC-2014BI064613

PATIENT
  Age: 55 Year
  Sex: Female

DRUGS (8)
  1. TYSABRI [Suspect]
     Active Substance: NATALIZUMAB
     Indication: MULTIPLE SCLEROSIS
     Route: 042
     Dates: start: 20080304, end: 20140414
  2. CYCLOBENZAPRINE [Concomitant]
     Active Substance: CYCLOBENZAPRINE
  3. FLUOXETINE [Concomitant]
     Active Substance: FLUOXETINE\FLUOXETINE HYDROCHLORIDE
  4. GABAPENTIN. [Concomitant]
     Active Substance: GABAPENTIN
  5. FOLIC ACID. [Concomitant]
     Active Substance: FOLIC ACID
  6. VITAMIN D2 [Concomitant]
     Active Substance: ERGOCALCIFEROL
  7. XANAX [Concomitant]
     Active Substance: ALPRAZOLAM
  8. FISH OIL [Concomitant]
     Active Substance: FISH OIL

REACTIONS (2)
  - Pneumonia [Unknown]
  - Adenosquamous cell lung cancer stage IV [Not Recovered/Not Resolved]

NARRATIVE: CASE EVENT DATE: 201404
